FAERS Safety Report 25671868 (Version 1)
Quarter: 2025Q3

REPORT INFORMATION
  Report Type: Spontaneous
  Country: GB (occurrence: GB)
  Receive Date: 20250812
  Receipt Date: 20250812
  Transmission Date: 20251021
  Serious: Yes (Hospitalization, Other)
  Sender: SANDOZ
  Company Number: None

PATIENT
  Age: 32 Year
  Sex: Female
  Weight: 78 kg

DRUGS (2)
  1. METHYLPHENIDATE [Suspect]
     Active Substance: METHYLPHENIDATE
     Indication: Attention deficit hyperactivity disorder
     Route: 065
     Dates: start: 20250808, end: 20250808
  2. ESCITALOPRAM [Concomitant]
     Active Substance: ESCITALOPRAM OXALATE
     Indication: Depression
     Route: 065
     Dates: start: 20241211

REACTIONS (7)
  - Musculoskeletal stiffness [Recovering/Resolving]
  - Muscular weakness [Recovering/Resolving]
  - Lip swelling [Recovering/Resolving]
  - Confusional state [Recovering/Resolving]
  - Vomiting [Recovered/Resolved]
  - Migraine [Recovering/Resolving]
  - Loss of bladder sensation [Recovered/Resolved]

NARRATIVE: CASE EVENT DATE: 20250808
